FAERS Safety Report 5360908-X (Version None)
Quarter: 2007Q2

REPORT INFORMATION
  Report Type: 
  Country: None (occurrence: None)
  Receive Date: 20070618
  Receipt Date: 20070615
  Transmission Date: 20071010
  Serious: Yes (Hospitalization)
  Sender: FDA-Public Use
  Company Number: US-BRISTOL-MYERS SQUIBB COMPANY-13816061

PATIENT
  Age: 65 Year
  Sex: Female
  Weight: 59 kg

DRUGS (10)
  1. CETUXIMAB [Suspect]
     Indication: NEOPLASM MALIGNANT
     Dates: start: 20070604, end: 20070604
  2. CISPLATIN [Suspect]
     Indication: NEOPLASM MALIGNANT
     Dates: start: 20070529, end: 20070529
  3. RADIATION THERAPY [Suspect]
     Indication: NEOPLASM MALIGNANT
  4. ACYCLOVIR [Concomitant]
  5. CEPHALEXIN [Concomitant]
  6. CLINDAMYCIN HCL [Concomitant]
  7. FLUCONAZOLE [Concomitant]
  8. LEVOFLOXACIN [Concomitant]
  9. MILK OF MAGNESIA [Concomitant]
  10. VITAMIN CAP [Concomitant]

REACTIONS (2)
  - PYREXIA [None]
  - STOMATITIS [None]
